FAERS Safety Report 18269779 (Version 1)
Quarter: 2020Q3

REPORT INFORMATION
  Report Type: Spontaneous
  Country: JP (occurrence: JP)
  Receive Date: 20200915
  Receipt Date: 20200915
  Transmission Date: 20201103
  Serious: Yes (Hospitalization, Other)
  Sender: FDA-Public Use
  Company Number: JP-MYLANLABS-2020M1078555

PATIENT
  Age: 65 Year
  Sex: Male
  Weight: 55 kg

DRUGS (3)
  1. LIDOCAINE. [Suspect]
     Active Substance: LIDOCAINE
     Indication: VENTRICULAR FIBRILLATION
     Dosage: 100MG AND 50MG
     Route: 065
  2. NIFEKALANT [Suspect]
     Active Substance: NIFEKALANT
     Indication: VENTRICULAR FIBRILLATION
     Dosage: 5?15MG THREE TIMES
     Route: 065
  3. LANDIOLOL [Suspect]
     Active Substance: LANDIOLOL
     Indication: VENTRICULAR FIBRILLATION
     Dosage: 2.5?15MG
     Route: 065

REACTIONS (4)
  - Overdose [Recovered/Resolved]
  - Off label use [Unknown]
  - Torsade de pointes [Recovered/Resolved]
  - Drug ineffective [Recovered/Resolved]
